FAERS Safety Report 15346340 (Version 4)
Quarter: 2018Q3

REPORT INFORMATION
  Report Type: Spontaneous
  Country: FR (occurrence: FR)
  Receive Date: 20180904
  Receipt Date: 20180926
  Transmission Date: 20181010
  Serious: Yes (Hospitalization, Other)
  Sender: FDA-Public Use
  Company Number: FR-ELI_LILLY_AND_COMPANY-FR201808011858

PATIENT
  Age: 56 Year
  Sex: Female
  Weight: 54 kg

DRUGS (2)
  1. ZYPADHERA [Suspect]
     Active Substance: OLANZAPINE PAMOATE
     Indication: SCHIZOPHRENIA
     Dosage: 300 MG, OTHER
     Route: 030
     Dates: start: 201701
  2. LOXAPAC                            /00401801/ [Concomitant]
     Active Substance: LOXAPINE
     Indication: PRODUCT USED FOR UNKNOWN INDICATION
     Dosage: UNK, UNKNOWN
     Route: 065

REACTIONS (15)
  - Poisoning [Recovered/Resolved]
  - Blood pressure increased [Unknown]
  - Glomerular filtration rate decreased [Unknown]
  - Anion gap increased [Unknown]
  - Post-injection delirium sedation syndrome [Recovered/Resolved]
  - Somnolence [Recovered/Resolved]
  - Dysarthria [Recovered/Resolved]
  - Disorientation [Recovered/Resolved]
  - Blood calcium increased [Unknown]
  - Accidental overdose [Recovered/Resolved]
  - Confusional state [Recovered/Resolved]
  - Tachycardia [Recovered/Resolved]
  - Gait disturbance [Recovered/Resolved]
  - Injection site haemorrhage [Unknown]
  - Blood glucose increased [Unknown]

NARRATIVE: CASE EVENT DATE: 20180719
